FAERS Safety Report 15148137 (Version 11)
Quarter: 2022Q2

REPORT INFORMATION
  Report Type: Report from Study
  Country: JP (occurrence: None)
  Receive Date: 20180716
  Receipt Date: 20220629
  Transmission Date: 20220721
  Serious: Yes (Hospitalization)
  Sender: FDA-Public Use
  Company Number: JP-ROCHE-2154343

PATIENT
  Age: 46 Year
  Sex: Female
  Weight: 44.5 kg

DRUGS (23)
  1. ATEZOLIZUMAB [Suspect]
     Active Substance: ATEZOLIZUMAB
     Indication: Ovarian cancer
     Dosage: MOST RECENT DOSE OF BLINDED ATEZOLIZUMAB PRIOR TO SAE ONSET
     Route: 042
     Dates: start: 20180626
  2. PACLITAXEL [Suspect]
     Active Substance: PACLITAXEL
     Indication: Ovarian cancer
     Dosage: AS PER PROTOCOL?MOST RECENT DOSE OF PACLITAXEL PRIOR TO SAE ONSET (253 MG)
     Route: 042
     Dates: start: 20180626
  3. CARBOPLATIN [Suspect]
     Active Substance: CARBOPLATIN
     Indication: Ovarian cancer
     Dosage: AREA UNDER THE CURVE (AUC) OF 6 MG/MLXMIN AS PER PROTOCOL?MOST RECENT DOSE OF CARBOPLATIN PRIOR TO S
     Route: 042
     Dates: start: 20180626
  4. DIETARY SUPPLEMENT\PROBIOTICS [Concomitant]
     Active Substance: DIETARY SUPPLEMENT\PROBIOTICS
     Indication: Constipation
     Dates: start: 20180608
  5. MAGNESIUM OXIDE [Concomitant]
     Active Substance: MAGNESIUM OXIDE
     Indication: Constipation
     Dates: start: 20180608
  6. ALOXI [Concomitant]
     Active Substance: PALONOSETRON HYDROCHLORIDE
     Indication: Premedication
     Dates: start: 20180626, end: 20180626
  7. ZANTAC [Concomitant]
     Active Substance: RANITIDINE HYDROCHLORIDE
     Indication: Premedication
     Dates: start: 20180626, end: 20180626
  8. CHLORPHENIRAMINE MALEATE [Concomitant]
     Active Substance: CHLORPHENIRAMINE MALEATE
     Indication: Premedication
     Dates: start: 20180626, end: 20180626
  9. DECADRON [Concomitant]
     Active Substance: DEXAMETHASONE
     Indication: Premedication
     Route: 042
     Dates: start: 20180626, end: 20180626
  10. LOXONIN PAP [Concomitant]
     Indication: Abdominal pain
     Dates: start: 20180626
  11. REBAMIPIDE [Concomitant]
     Active Substance: REBAMIPIDE
     Indication: Abdominal pain
     Dates: start: 20180626
  12. MOSAPRIDE CITRATE [Concomitant]
     Active Substance: MOSAPRIDE CITRATE
     Indication: Abdominal pain
     Dates: start: 20180608
  13. PRIMPERAN [Concomitant]
     Active Substance: METOCLOPRAMIDE HYDROCHLORIDE
     Dates: start: 20180627
  14. REBAMIPIDE [Concomitant]
     Active Substance: REBAMIPIDE
     Indication: Abdominal pain
     Dates: start: 20180626
  15. XYLOCAINE [Concomitant]
     Active Substance: LIDOCAINE HYDROCHLORIDE
     Indication: Ascites
     Dates: start: 20180627, end: 20180627
  16. AZUNOL [Concomitant]
     Indication: Cheilitis
     Dates: start: 20180710, end: 20180930
  17. AZUNOL [Concomitant]
     Indication: Oropharyngeal pain
     Dates: start: 20180711
  18. ALLELOCK [Concomitant]
     Active Substance: OLOPATADINE HYDROCHLORIDE
     Indication: Erythema multiforme
     Dates: start: 20180711, end: 20180716
  19. BETAMETHASONE DIPROPIONATE [Concomitant]
     Active Substance: BETAMETHASONE DIPROPIONATE
     Indication: Erythema multiforme
     Route: 050
     Dates: start: 20180711, end: 20180718
  20. LOCOID [Concomitant]
     Active Substance: HYDROCORTISONE BUTYRATE
     Indication: Erythema multiforme
     Route: 050
     Dates: start: 20180711, end: 20180718
  21. TRANEXAMIC ACID [Concomitant]
     Active Substance: TRANEXAMIC ACID
     Indication: Erythema multiforme
     Dates: start: 20180712
  22. PYRIDOXAL [Concomitant]
     Active Substance: PYRIDOXAL
     Indication: Erythema multiforme
     Dates: start: 20180716
  23. DEXAMETHASONE [Concomitant]
     Active Substance: DEXAMETHASONE
     Indication: Stomatitis
     Dates: start: 20180716

REACTIONS (1)
  - Febrile neutropenia [Recovered/Resolved]

NARRATIVE: CASE EVENT DATE: 20180706
